FAERS Safety Report 14847116 (Version 2)
Quarter: 2018Q2

REPORT INFORMATION
  Report Type: Report from Study
  Country: ES (occurrence: ES)
  Receive Date: 20180504
  Receipt Date: 20180530
  Transmission Date: 20180711
  Serious: Yes (Hospitalization)
  Sender: FDA-Public Use
  Company Number: ES-LPDUSPRD-20180752

PATIENT
  Age: 75 Year
  Sex: Male
  Weight: 75.8 kg

DRUGS (11)
  1. AVAMYS [Concomitant]
     Active Substance: FLUTICASONE FUROATE
     Dosage: (2.75 MG,2 IN 1 D) 2 SPRAYS
     Route: 065
     Dates: start: 20160829
  2. CARVEDILOL. [Concomitant]
     Active Substance: CARVEDILOL
     Dosage: 12.5 MG BID 1 IN 12 HR
     Route: 048
     Dates: start: 20151218
  3. JANUVIA [Concomitant]
     Active Substance: SITAGLIPTIN PHOSPHATE
     Dosage: 50 MG QD
     Route: 048
     Dates: start: 20180105
  4. ULTIBRO [Concomitant]
     Active Substance: GLYCOPYRRONIUM\INDACATEROL
     Dosage: 85/43 MICROGRAM, 1 PUFF
     Route: 065
     Dates: start: 20160704
  5. SEGURIL [Concomitant]
     Active Substance: FUROSEMIDE
     Dosage: (40 MG,1 IN 2 D)
     Route: 048
     Dates: start: 20180105
  6. PROCORALAN [Concomitant]
     Active Substance: IVABRADINE
     Dosage: 5 MG (5 MG,1 IN 1 D)
     Route: 048
     Dates: start: 20170321
  7. TAMSULOSIN [Concomitant]
     Active Substance: TAMSULOSIN
     Dosage: 0.4 MG (0.4 MG,1 IN 1 D)
     Route: 048
     Dates: start: 20160809
  8. ACETYLSALICYLIC ACID [Concomitant]
     Active Substance: ASPIRIN
     Dosage: 100 MG (100 MG,1 IN 1 D)
     Route: 048
     Dates: start: 20160809
  9. ATORVASTATIN [Concomitant]
     Active Substance: ATORVASTATIN
     Dosage: 40 MG QD
     Route: 048
     Dates: start: 20160202
  10. FERINJECT [Suspect]
     Active Substance: FERRIC CARBOXYMALTOSE
     Dosage: 1000 MG,ONCE
     Route: 041
     Dates: start: 20171213, end: 20171213
  11. OMEPRAZOLE. [Concomitant]
     Active Substance: OMEPRAZOLE
     Dosage: 20 MG (1 IN 1 D)
     Route: 048
     Dates: start: 20160809

REACTIONS (1)
  - Renal failure [Recovered/Resolved]

NARRATIVE: CASE EVENT DATE: 20171231
